FAERS Safety Report 8174308-0 (Version None)
Quarter: 2012Q1

REPORT INFORMATION
  Report Type: 
  Country: None (occurrence: None)
  Receive Date: 20120229
  Receipt Date: 20120224
  Transmission Date: 20120608
  Serious: Yes (Hospitalization)
  Sender: FDA-Public Use
  Company Number: GB-MERCK-1202GBR00080

PATIENT
  Age: 49 Year
  Sex: Male
  Weight: 69 kg

DRUGS (10)
  1. ELAVIL [Concomitant]
     Route: 048
  2. PRINIVIL [Concomitant]
     Route: 048
  3. ACETAMINOPHEN AND CODEINE PHOSPHATE [Concomitant]
     Route: 065
  4. ALBUTEROL [Concomitant]
     Route: 055
  5. BECLOMETHASONE DIPROPIONATE [Concomitant]
     Route: 055
  6. ZOCOR [Suspect]
     Indication: HYPERCHOLESTEROLAEMIA
     Route: 048
     Dates: start: 20100101, end: 20110701
  7. ZOCOR [Suspect]
     Route: 048
     Dates: start: 20110801, end: 20120119
  8. METFORMIN [Concomitant]
     Route: 065
  9. ALBUTEROL [Concomitant]
     Route: 055
  10. FLUOXETINE [Concomitant]
     Route: 065

REACTIONS (12)
  - BLOOD URINE PRESENT [None]
  - MALAISE [None]
  - MYALGIA [None]
  - MYOGLOBIN URINE PRESENT [None]
  - ASTHENIA [None]
  - BLOOD CREATINE PHOSPHOKINASE INCREASED [None]
  - RHABDOMYOLYSIS [None]
  - ALANINE AMINOTRANSFERASE INCREASED [None]
  - CHROMATURIA [None]
  - HAEMATURIA [None]
  - MYOGLOBIN URINE [None]
  - PROTEIN URINE PRESENT [None]
